FAERS Safety Report 11750797 (Version 3)
Quarter: 2016Q1

REPORT INFORMATION
  Report Type: Report from Study
  Country: CA (occurrence: CA)
  Receive Date: 20151118
  Receipt Date: 20160312
  Transmission Date: 20160525
  Serious: Yes (Hospitalization, Other)
  Sender: FDA-Public Use
  Company Number: CA-AMGEN-CANSL2015119774

PATIENT
  Age: 86 Year
  Sex: Female

DRUGS (5)
  1. RABEPRAZOLE [Concomitant]
     Active Substance: RABEPRAZOLE
  2. VITAMIN 15 [Concomitant]
  3. PROLIA [Suspect]
     Active Substance: DENOSUMAB
     Indication: OSTEOPOROSIS POSTMENOPAUSAL
     Dosage: 60 MG/ML, Q6MO
     Route: 058
     Dates: start: 20120123
  4. CALCIUM [Concomitant]
     Active Substance: CALCIUM
  5. IRON [Concomitant]
     Active Substance: IRON

REACTIONS (4)
  - Adenocarcinoma of colon [Unknown]
  - Tooth extraction [Unknown]
  - Pyrexia [Unknown]
  - Haemoglobin abnormal [Unknown]

NARRATIVE: CASE EVENT DATE: 2012
